FAERS Safety Report 10667186 (Version 1)
Quarter: 2014Q4

REPORT INFORMATION
  Report Type: Spontaneous
  Country: US (occurrence: None)
  Receive Date: 20141219
  Receipt Date: 20141219
  Transmission Date: 20150529
  Serious: No
  Sender: FDA-Public Use
  Company Number: None

PATIENT
  Age: 61 Year
  Sex: Female
  Weight: 60.33 kg

DRUGS (1)
  1. ARESTIN [Suspect]
     Active Substance: MINOCYCLINE HYDROCHLORIDE
     Indication: DENTAL OPERATION
     Dosage: 2 CARTRIDGES, 2 AT ONE TIME, INJECTED INTO THE GUMS NEXT TO TEETH
     Dates: start: 20141127, end: 20141127

REACTIONS (4)
  - Headache [None]
  - Erythema multiforme [None]
  - Pyrexia [None]
  - Oral mucosal blistering [None]

NARRATIVE: CASE EVENT DATE: 20141215
